FAERS Safety Report 5676028-0 (Version None)
Quarter: 2008Q1

REPORT INFORMATION
  Report Type: 
  Country: None (occurrence: None)
  Receive Date: 20080321
  Receipt Date: 20080312
  Transmission Date: 20080703
  Serious: Yes (Other)
  Sender: FDA-Public Use
  Company Number: GB-ASTRAZENECA-2008GB00495

PATIENT
  Sex: Female

DRUGS (2)
  1. SEROQUEL [Suspect]
     Route: 048
  2. VENLAFAXINE HCL [Concomitant]
     Indication: DEPRESSION

REACTIONS (2)
  - BREAST PAIN [None]
  - GLYCOSURIA [None]
